FAERS Safety Report 10787987 (Version 1)
Quarter: 2015Q1

REPORT INFORMATION
  Report Type: Spontaneous
  Country: US (occurrence: None)
  Receive Date: 20150211
  Receipt Date: 20150211
  Transmission Date: 20150721
  Serious: Yes (Death)
  Sender: FDA-Public Use
  Company Number: None

PATIENT
  Age: 33 Year
  Sex: Female
  Weight: 72 kg

DRUGS (1)
  1. IODIXANOL [Suspect]
     Active Substance: IODIXANOL
     Indication: FISTULOGRAM
     Route: 042
     Dates: start: 20141107, end: 20141107

REACTIONS (8)
  - General physical health deterioration [None]
  - Pneumothorax [None]
  - Pulse absent [None]
  - Swollen tongue [None]
  - Swelling face [None]
  - Eye swelling [None]
  - Cardio-respiratory arrest [None]
  - Respiratory distress [None]

NARRATIVE: CASE EVENT DATE: 20141107
